FAERS Safety Report 5781872-5 (Version None)
Quarter: 2008Q2

REPORT INFORMATION
  Report Type: 
  Country: None (occurrence: None)
  Receive Date: 20080623
  Receipt Date: 20080610
  Transmission Date: 20081010
  Serious: Yes (Hospitalization, Congenital Anomaly)
  Sender: FDA-Public Use
  Company Number: A0662891A

PATIENT
  Sex: Male
  Weight: 2.9 kg

DRUGS (5)
  1. PAXIL [Suspect]
     Indication: DEPRESSION
     Dosage: 20MG PER DAY
     Dates: start: 20050601, end: 20050801
  2. PAROXETINE HCL [Suspect]
     Indication: DEPRESSION
  3. VITAMIN TAB [Concomitant]
  4. TYLENOL [Concomitant]
  5. INSULIN [Concomitant]
     Dates: start: 20050101, end: 20060101

REACTIONS (15)
  - ATRIAL SEPTAL DEFECT [None]
  - BRADYCARDIA FOETAL [None]
  - CARDIAC MURMUR [None]
  - CARDIOMEGALY [None]
  - CYANOSIS [None]
  - DRUG EXPOSURE DURING PREGNANCY [None]
  - EBSTEIN'S ANOMALY [None]
  - EXTRASYSTOLES [None]
  - HEART DISEASE CONGENITAL [None]
  - LEFT VENTRICULAR DYSFUNCTION [None]
  - PATENT DUCTUS ARTERIOSUS [None]
  - PERSISTENT FOETAL CIRCULATION [None]
  - PREMATURE BABY [None]
  - RESPIRATORY DISTRESS [None]
  - TRICUSPID VALVE DISEASE [None]
